FAERS Safety Report 8804518 (Version 3)
Quarter: 2013Q1

REPORT INFORMATION
  Report Type: Report from Study
  Country: JP (occurrence: JP)
  Receive Date: 20120923
  Receipt Date: 20130119
  Transmission Date: 20140127
  Serious: Yes (Other)
  Sender: FDA-Public Use
  Company Number: JP-009507513-1209JPN005901

PATIENT
  Age: 68 Year
  Sex: Male
  Weight: 60 kg

DRUGS (18)
  1. PEGINTRON [Suspect]
     Indication: CHRONIC HEPATITIS C
     Dosage: 1.5 MICROGRAM PER KILOGRAM, UNK
     Route: 058
     Dates: start: 20120628, end: 20120816
  2. PEGINTRON [Suspect]
     Dosage: 1.1 MICROGRAM PER KILOGRAM, QW,DAILY DOSE UNKNOWN
     Route: 058
     Dates: start: 20120817
  3. PEGINTRON [Suspect]
     Dosage: 1.5 MICROGRAM PER KILOGRAM, QW
     Route: 058
     Dates: end: 20121123
  4. REBETOL [Suspect]
     Indication: CHRONIC HEPATITIS C
     Dosage: 600 MG, QD
     Route: 048
     Dates: start: 20120628, end: 20120802
  5. REBETOL [Suspect]
     Dosage: 200 MG, QD
     Route: 048
     Dates: start: 20120803, end: 20120816
  6. REBETOL [Suspect]
     Dosage: 200 MG AND 400 MG ON ALTERNATE DAYS
     Route: 048
     Dates: start: 20121019, end: 20121025
  7. REBETOL [Suspect]
     Dosage: 400 MG, QD
     Route: 048
     Dates: start: 20121026, end: 20121123
  8. TELAVIC [Suspect]
     Indication: CHRONIC HEPATITIS C
     Dosage: 2250 MG, QD
     Route: 048
     Dates: start: 20120628, end: 20120824
  9. PARIET [Concomitant]
     Indication: GASTRITIS
     Dosage: 10 MG, QD, FORMULATION : POR
     Route: 048
  10. PROMAC (POLAPREZINC) [Concomitant]
     Indication: GASTRITIS
     Dosage: 150 MG, QD , FORMULATION : POR
     Route: 048
  11. NU-LOTAN TABLETS 25MG [Concomitant]
     Indication: HYPERTENSION
     Dosage: 25 MG, QD, FORMULATION : POR
     Route: 048
  12. NOVOLIN R [Concomitant]
     Indication: TYPE 2 DIABETES MELLITUS
     Dosage: 26 DF, QD
     Route: 058
  13. LOXONIN [Concomitant]
     Indication: BACK PAIN
     Dosage: FORMULATION : POR, PRN
     Route: 048
  14. LOXONIN [Concomitant]
     Indication: ADVERSE EVENT
     Dosage: 60 MG, QD,FORMULATION:POR, PRN
     Route: 048
  15. LOXONIN [Concomitant]
     Dosage: 60 MG, QD, FORMULATION: POR
     Route: 048
  16. MUCOSTA [Concomitant]
     Indication: BACK PAIN
     Dosage: UNK, PRN, FORMULATION: POR
     Route: 048
  17. MUCOSTA [Concomitant]
     Indication: ADVERSE EVENT
     Dosage: 100MG,QD,PRN,FORMULATION : POR
     Route: 048
  18. MUCOSTA [Concomitant]
     Dosage: 100 MG, PRN, FORMULATION:POR
     Route: 048

REACTIONS (5)
  - Renal impairment [Not Recovered/Not Resolved]
  - Renal impairment [Recovering/Resolving]
  - Anaemia [Not Recovered/Not Resolved]
  - Anaemia [Recovering/Resolving]
  - Bronchitis [Recovering/Resolving]
